FAERS Safety Report 4756576-8 (Version None)
Quarter: 2005Q3

REPORT INFORMATION
  Report Type: 
  Country: None (occurrence: None)
  Receive Date: 20050823
  Receipt Date: 20050617
  Transmission Date: 20060218
  Serious: Yes (Hospitalization)
  Sender: FDA-Public Use
  Company Number: 215532

PATIENT
  Age: 51 Year
  Sex: Male

DRUGS (1)
  1. RAPTIVA [Suspect]
     Indication: PSORIASIS
     Dates: start: 20040601

REACTIONS (3)
  - PYREXIA [None]
  - URTICARIA [None]
  - WHITE BLOOD CELL COUNT INCREASED [None]
